FAERS Safety Report 11455561 (Version 1)
Quarter: 2015Q3

REPORT INFORMATION
  Report Type: Spontaneous
  Country: US (occurrence: US)
  Receive Date: 20150903
  Receipt Date: 20150903
  Transmission Date: 20151125
  Serious: No
  Sender: FDA-Public Use
  Company Number: US-BEH-2014043563

PATIENT
  Sex: Female
  Weight: 88 kg

DRUGS (44)
  1. ZEMAIRA [Suspect]
     Active Substance: .ALPHA.1-PROTEINASE INHIBITOR HUMAN
     Indication: ALPHA-1 ANTI-TRYPSIN DEFICIENCY
     Route: 042
  2. VITAMIN B1 [Concomitant]
     Active Substance: THIAMINE HYDROCHLORIDE
  3. XYZAL [Concomitant]
     Active Substance: LEVOCETIRIZINE DIHYDROCHLORIDE
  4. SODIUM CHLORIDE. [Concomitant]
     Active Substance: SODIUM CHLORIDE
  5. PSEUDOEPHEDRINE [Concomitant]
     Active Substance: PSEUDOEPHEDRINE
  6. ADVAIR HFA [Concomitant]
     Active Substance: FLUTICASONE PROPIONATE\SALMETEROL XINAFOATE
  7. AVELOX [Concomitant]
     Active Substance: MOXIFLOXACIN HYDROCHLORIDE
  8. VITAMIN B6 [Concomitant]
     Active Substance: PYRIDOXINE HYDROCHLORIDE
  9. VITAMIN D3 [Concomitant]
     Active Substance: CHOLECALCIFEROL
  10. FISH OIL [Concomitant]
     Active Substance: FISH OIL
  11. OXYGEN. [Concomitant]
     Active Substance: OXYGEN
  12. XANAX [Concomitant]
     Active Substance: ALPRAZOLAM
  13. HEPARIN [Concomitant]
     Active Substance: HEPARIN SODIUM
  14. BECLOMETHASONE DIPROPIONATE [Concomitant]
     Active Substance: BECLOMETHASONE DIPROPIONATE
  15. REVATIO [Concomitant]
     Active Substance: SILDENAFIL CITRATE
  16. GLUCOSAMINE CHONDROITIN [Concomitant]
     Active Substance: CHONDROITIN SULFATE (BOVINE)\GLUCOSAMINE HYDROCHLORIDE
  17. PREDNISONE. [Concomitant]
     Active Substance: PREDNISONE
  18. DIPHENHYDRAMINE. [Concomitant]
     Active Substance: DIPHENHYDRAMINE
  19. IBUPROFEN. [Concomitant]
     Active Substance: IBUPROFEN
  20. SINGULAIR [Concomitant]
     Active Substance: MONTELUKAST SODIUM
  21. ADVIL [Concomitant]
     Active Substance: IBUPROFEN
  22. LEVOFLOXACIN. [Concomitant]
     Active Substance: LEVOFLOXACIN
  23. ALBUTEROL. [Concomitant]
     Active Substance: ALBUTEROL
  24. FLEXERIL [Concomitant]
     Active Substance: CYCLOBENZAPRINE HYDROCHLORIDE
  25. LYRICA [Concomitant]
     Active Substance: PREGABALIN
  26. TRAMADOL. [Concomitant]
     Active Substance: TRAMADOL
  27. STOOL SOFTENER [Concomitant]
     Active Substance: DOCUSATE CALCIUM
  28. CYMBALTA [Concomitant]
     Active Substance: DULOXETINE HYDROCHLORIDE
  29. VICODIN [Concomitant]
     Active Substance: ACETAMINOPHEN\HYDROCODONE BITARTRATE
  30. FOLIC ACID. [Concomitant]
     Active Substance: FOLIC ACID
  31. CLINDAMYCIN [Concomitant]
     Active Substance: CLINDAMYCIN\CLINDAMYCIN PHOSPHATE
  32. MAGNESIUM [Concomitant]
     Active Substance: MAGNESIUM
  33. PREVACID [Concomitant]
     Active Substance: LANSOPRAZOLE
  34. METOPROLOL [Concomitant]
     Active Substance: METOPROLOL
  35. LIDOCAINE. [Concomitant]
     Active Substance: LIDOCAINE
  36. EPIPEN [Concomitant]
     Active Substance: EPINEPHRINE
  37. AZITHROMYCIN [Concomitant]
     Active Substance: AZITHROMYCIN ANHYDROUS
  38. NASOGEL [Concomitant]
  39. ZOLPIDEM [Concomitant]
     Active Substance: ZOLPIDEM\ZOLPIDEM TARTRATE
  40. PROAIR HFA [Concomitant]
     Active Substance: ALBUTEROL SULFATE
  41. DOXYCYCLINE. [Concomitant]
     Active Substance: DOXYCYCLINE
  42. SPIRIVA [Concomitant]
     Active Substance: TIOTROPIUM BROMIDE MONOHYDRATE
  43. PROGRAF [Concomitant]
     Active Substance: TACROLIMUS\TACROLIMUS ANHYDROUS
  44. CALCIUM [Concomitant]
     Active Substance: CALCIUM

REACTIONS (1)
  - Anaemia [Unknown]
